FAERS Safety Report 15776115 (Version 1)
Quarter: 2018Q4

REPORT INFORMATION
  Report Type: Report from Study
  Country: CN (occurrence: CN)
  Receive Date: 20181231
  Receipt Date: 20181231
  Transmission Date: 20190205
  Serious: Yes (Other)
  Sender: FDA-Public Use
  Company Number: CN-ROCHE-2237328

PATIENT

DRUGS (2)
  1. CAPECITABINE. [Suspect]
     Active Substance: CAPECITABINE
     Indication: COLORECTAL CANCER
     Dosage: MAINTENANCE THERAPY, FOR 2 CONSECUTIVE WEEKS, FOLLOWED BY AN INTERVAL OF 1 WEEK FOR REST; EVERY 3 WE
     Route: 048
  2. BEVACIZUMAB. [Suspect]
     Active Substance: BEVACIZUMAB
     Indication: COLORECTAL CANCER
     Dosage: ADDED INTO 100ML OF 0.9% SODIUM CHLORIDE INJECTION, FOR INTRAVENOUS DRIP WITHIN 30 TO 90 MINUTES
     Route: 041

REACTIONS (14)
  - Vomiting [Recovered/Resolved]
  - Fatigue [Recovered/Resolved]
  - Anaemia [Recovered/Resolved]
  - White blood cell count decreased [Recovered/Resolved]
  - Platelet count decreased [Recovered/Resolved]
  - Rectal haemorrhage [Recovered/Resolved]
  - Hepatic function abnormal [Recovered/Resolved]
  - Palmar-plantar erythrodysaesthesia syndrome [Recovered/Resolved]
  - Epistaxis [Recovered/Resolved]
  - Nausea [Recovered/Resolved]
  - Mucosal inflammation [Recovered/Resolved]
  - Pigmentation disorder [Recovered/Resolved]
  - Renal impairment [Recovered/Resolved]
  - Diarrhoea [Recovered/Resolved]
